FAERS Safety Report 4852965-1 (Version None)
Quarter: 2005Q4

REPORT INFORMATION
  Report Type: 
  Country: None (occurrence: None)
  Receive Date: 20051212
  Receipt Date: 20051118
  Transmission Date: 20060501
  Serious: Yes (Other)
  Sender: FDA-Public Use
  Company Number: US200511001986

PATIENT
  Age: 57 Year
  Sex: Female

DRUGS (4)
  1. HUMULIN N [Suspect]
     Indication: DIABETES MELLITUS NON-INSULIN-DEPENDENT
     Dosage: 45 U, 2/D
  2. HUMULIN R [Suspect]
     Indication: DIABETES MELLITUS NON-INSULIN-DEPENDENT
     Dosage: AS NEEDED
  3. NOVOLOG [Concomitant]
  4. GLUCOPHAGE - SLOW RELEASE (METFORMIN HYDROCHLORIDE) TABLET [Concomitant]

REACTIONS (6)
  - BLINDNESS [None]
  - BLOOD GLUCOSE DECREASED [None]
  - BLOOD GLUCOSE FLUCTUATION [None]
  - BLOOD GLUCOSE INCREASED [None]
  - CATARACT [None]
  - RETINAL DISORDER [None]
